FAERS Safety Report 15134813 (Version 1)
Quarter: 2018Q3

REPORT INFORMATION
  Report Type: Spontaneous
  Country: GB (occurrence: GB)
  Receive Date: 20180712
  Receipt Date: 20180712
  Transmission Date: 20181010
  Serious: Yes (Other)
  Sender: FDA-Public Use
  Company Number: GB-PFIZER INC-2018275495

PATIENT
  Age: 76 Year
  Sex: Male

DRUGS (15)
  1. PARACETAMOL [Concomitant]
     Active Substance: ACETAMINOPHEN
     Dosage: AS NEEDED, (1?2 FOUR TIMES A DAY WHEN REQUIRED)
  2. OXYCODONE [Concomitant]
     Active Substance: OXYCODONE
     Dosage: 5 MG, 2X/DAY(5MG TWICE A DAY ? DOSE INCREASED 10MG TWICE A DAY)
  3. DOCUSATE [Concomitant]
     Active Substance: DOCUSATE
     Dosage: 400 MG, 1X/DAY
  4. MORPHINE SULFATE. [Concomitant]
     Active Substance: MORPHINE SULFATE
     Dosage: AS NEEDED, (2.5?5 ML AS REQUIRED AT LEAST 1 HOUR BETWEEN)
  5. LIDOCAINE. [Concomitant]
     Active Substance: LIDOCAINE
     Dosage: 5%, UNK, (12 HOURS ON/OFF.)
     Route: 062
  6. WARFARIN [Concomitant]
     Active Substance: WARFARIN
     Dosage: CYCLIC, (3MG MON, WED, FRI AND 4MG REST OF WEEK)
  7. AMITRIPTYLINE [Concomitant]
     Active Substance: AMITRIPTYLINE
     Dosage: 10 MG, 1X/DAY, (NIGHT)
  8. MEROPENEM. [Suspect]
     Active Substance: MEROPENEM
     Dosage: 3 G, 1X/DAY (PATIENT STARTED WHILST IN HOSPITAL.)
  9. CO?AMILOFRUSE [Concomitant]
     Active Substance: AMILORIDE\FUROSEMIDE
     Dosage: 1 DF, 1X/DAY, (MORNING)
  10. GABAPENTIN. [Concomitant]
     Active Substance: GABAPENTIN
     Dosage: 900 MG, 1X/DAY
  11. OXYCODONE [Concomitant]
     Active Substance: OXYCODONE
     Dosage: 10 MG, 2X/DAY(5MG TWICE A DAY ? DOSE INCREASED 10MG TWICE A DAY)
  12. CASSIA SENNA [Concomitant]
     Active Substance: HERBALS\SENNOSIDES
     Dosage: 2 DF,1X/DAY, (NIGHT)
  13. ZOPICLONE [Concomitant]
     Active Substance: ZOPICLONE
     Indication: SLEEP DISORDER
     Dosage: 3.75 MG, AS NEEDED
  14. LANSOPRAZOLE. [Concomitant]
     Active Substance: LANSOPRAZOLE
     Dosage: 30 MG, 1X/DAY
  15. FERROUS FUMARATE [Concomitant]
     Active Substance: FERROUS FUMARATE
     Dosage: 400 MG, 1X/DAY

REACTIONS (1)
  - Pancytopenia [Unknown]
